FAERS Safety Report 5376900-5 (Version None)
Quarter: 2007Q3

REPORT INFORMATION
  Report Type: 
  Country: None (occurrence: None)
  Receive Date: 20070703
  Receipt Date: 20070627
  Transmission Date: 20080115
  Serious: Yes (Hospitalization, Other)
  Sender: FDA-Public Use
  Company Number: US-AMGEN-STX222847

PATIENT
  Sex: Female

DRUGS (20)
  1. ENBREL [Suspect]
     Indication: RHEUMATOID ARTHRITIS
     Route: 058
     Dates: start: 20011201, end: 20020701
  2. ENBREL [Suspect]
     Indication: PSORIASIS
  3. VITAMIN CAP [Concomitant]
  4. FISH OIL [Concomitant]
  5. ACIDOPHILUS [Concomitant]
  6. NIASPAN [Concomitant]
  7. PREVACID [Concomitant]
  8. ESTRATEST [Concomitant]
  9. FOLIC ACID [Concomitant]
  10. DIGITEK [Concomitant]
  11. DILANTIN [Concomitant]
  12. ASPIRIN [Concomitant]
  13. PRIMIDONE [Concomitant]
  14. PROVENTIL INHALER [Concomitant]
  15. XANAX [Concomitant]
  16. MOBIC [Concomitant]
  17. CYMBALTA [Concomitant]
  18. OXYCONTIN [Concomitant]
  19. ROXICODONE [Concomitant]
  20. AMBIEN [Concomitant]

REACTIONS (3)
  - HEPATIC ENZYME INCREASED [None]
  - LUNG ADENOCARCINOMA [None]
  - POST PROCEDURAL COMPLICATION [None]
